FAERS Safety Report 24746258 (Version 2)
Quarter: 2025Q1

REPORT INFORMATION
  Report Type: Spontaneous
  Country: US (occurrence: US)
  Receive Date: 20241218
  Receipt Date: 20250106
  Transmission Date: 20250409
  Serious: No
  Sender: ALK-ABELLO
  Company Number: US-ALK-ABELLO A/S-2024AA004480

PATIENT

DRUGS (9)
  1. JUGLANS REGIA POLLEN [Suspect]
     Active Substance: JUGLANS REGIA POLLEN
     Indication: Skin test
     Dates: start: 20240116
  2. PREDNISOLONE SODIUM PHOSPHATE [Concomitant]
     Active Substance: PREDNISOLONE SODIUM PHOSPHATE
     Indication: Product used for unknown indication
     Route: 048
     Dates: start: 20240109
  3. FLONASE [Concomitant]
     Active Substance: FLUTICASONE PROPIONATE
     Indication: Product used for unknown indication
  4. CARBINOXAMINE [Concomitant]
     Active Substance: CARBINOXAMINE
     Indication: Product used for unknown indication
     Route: 048
     Dates: start: 20231024
  5. OLOPATADINE [Concomitant]
     Active Substance: OLOPATADINE
     Indication: Product used for unknown indication
     Route: 045
     Dates: start: 20201001
  6. SINGULAIR [Concomitant]
     Active Substance: MONTELUKAST SODIUM
     Indication: Product used for unknown indication
     Dates: start: 20210726
  7. CEFDINIR PHYSICIAN PARTNER [Concomitant]
     Dosage: 2.2 MILLILITER, BID
  8. AUGMENTIN [Concomitant]
     Active Substance: AMOXICILLIN\CLAVULANATE POTASSIUM
     Dosage: 3 MILLILITER, BID
  9. CLARITIN REDITABS [Concomitant]
     Active Substance: LORATADINE

REACTIONS (1)
  - False negative investigation result [Unknown]

NARRATIVE: CASE EVENT DATE: 20240116
